FAERS Safety Report 9221513 (Version 4)
Quarter: 2013Q4

REPORT INFORMATION
  Report Type: Report from Study
  Country: GB (occurrence: None)
  Receive Date: 20130408
  Receipt Date: 20131003
  Transmission Date: 20140711
  Serious: Yes (Hospitalization)
  Sender: FDA-Public Use
  Company Number: SYM-2013-02315

PATIENT
  Age: 65 Year
  Sex: Male

DRUGS (11)
  1. 5-FU [Suspect]
     Indication: COLORECTAL CANCER METASTATIC
     Route: 040
     Dates: start: 20121001, end: 20121001
  2. IRINOTECAN [Suspect]
     Indication: COLORECTAL CANCER METASTATIC
     Route: 042
     Dates: start: 20121001, end: 20121001
  3. LEUCOVORIN [Suspect]
     Indication: COLORECTAL CANCER METASTATIC
     Route: 042
     Dates: start: 20121001, end: 20121001
  4. AFLIBERCEPT [Suspect]
     Indication: COLORECTAL CANCER METASTATIC
     Route: 042
     Dates: start: 20121001, end: 20121001
  5. CALCIUM CHANNEL BLOCKERS (CALCIUM CHANNEL BLOCKERS) [Concomitant]
  6. LOPERAMIDE(LOPERAMIDE) (LOPERAMIDE) [Concomitant]
  7. VITAMIN B12 (YANOCOBALAMIN) (CYANOCOBALAMIN) [Concomitant]
  8. LACTULOSE(LACTULOSE)(LACTULOSE) [Concomitant]
  9. ANTIBIOTICS(ANTIBIOTICS) [Concomitant]
  10. STREPSILS(STREPSILS/00200801/)(AMYLMETACRESOL, DICHLOROBENZYL ALCOHOL) [Concomitant]
  11. DIFFLAM(BENZYDAMINE HYDROCHLORIDE)(BENZYDAMINE HYDROCHLORIDE) [Concomitant]

REACTIONS (1)
  - Neutropenic sepsis [None]
